FAERS Safety Report 10561516 (Version 1)
Quarter: 2014Q4

REPORT INFORMATION
  Report Type: Spontaneous
  Country: DE (occurrence: DE)
  Receive Date: 20141103
  Receipt Date: 20141103
  Transmission Date: 20150529
  Serious: Yes (Congenital Anomaly, Other)
  Sender: FDA-Public Use
  Company Number: GXKR2014DE004032

PATIENT

DRUGS (7)
  1. BREVACTID [Concomitant]
     Active Substance: CHORIOGONADOTROPIN ALFA
     Indication: INFERTILITY FEMALE
     Dosage: 5000 [I.U.]/YEARS
     Route: 064
     Dates: start: 20130812, end: 20130812
  2. UTROGEST [Concomitant]
     Active Substance: PROGESTERONE
     Indication: PROPHYLAXIS OF ABORTION
     Dosage: 300 [MG/D ]
     Route: 064
     Dates: start: 20130814, end: 20130828
  3. GONAL-F [Concomitant]
     Active Substance: FOLLITROPIN
     Indication: INFERTILITY FEMALE
     Dosage: 112.5 [IU/D ]
     Route: 064
     Dates: start: 20130731, end: 20130811
  4. VIGANTOLETTEN [Concomitant]
     Active Substance: CHOLECALCIFEROL
     Indication: VITAMIN D DEFICIENCY
     Dosage: 1000 [I.E. ]
     Route: 064
     Dates: start: 20131217, end: 20140511
  5. METFORMIN [Suspect]
     Active Substance: METFORMIN HYDROCHLORIDE
     Indication: INSULIN RESISTANCE
     Dosage: 2000 [MG/D (1000-0-1000) ]
     Route: 064
     Dates: start: 20130730, end: 20140511
  6. AFLURIA [Concomitant]
     Active Substance: INFLUENZA VIRUS VACCINE TRIVALENT TYPE A+B AFLURIA
     Indication: IMMUNISATION
     Route: 064
     Dates: start: 20131111, end: 20131111
  7. TAXOFIT EISEN+METAFOLIN [Concomitant]
     Indication: PROPHYLAXIS OF NEURAL TUBE DEFECT
     Dosage: 0.8 [MG/D ]
     Route: 064
     Dates: start: 20130730, end: 20131029

REACTIONS (2)
  - Cryptorchism [Not Recovered/Not Resolved]
  - Small for dates baby [Unknown]

NARRATIVE: CASE EVENT DATE: 20140511
